FAERS Safety Report 10983199 (Version 2)
Quarter: 2015Q2

REPORT INFORMATION
  Report Type: Spontaneous
  Country: US (occurrence: US)
  Receive Date: 20150403
  Receipt Date: 20150526
  Transmission Date: 20150821
  Serious: Yes (Hospitalization, Other)
  Sender: FDA-Public Use
  Company Number: US-PFIZER INC-2015112837

PATIENT
  Age: 56 Year
  Sex: Female
  Weight: 71.2 kg

DRUGS (1)
  1. SUTENT [Suspect]
     Active Substance: SUNITINIB MALATE
     Indication: RENAL CANCER
     Dosage: 50 MG, DAILY
     Route: 048
     Dates: start: 20150225, end: 20150313

REACTIONS (3)
  - Unresponsive to stimuli [Recovered/Resolved]
  - Myocardial necrosis marker increased [Recovered/Resolved]
  - Hepatic enzyme increased [Recovered/Resolved]
